FAERS Safety Report 8415579-2 (Version None)
Quarter: 2012Q2

REPORT INFORMATION
  Report Type: 
  Country: None (occurrence: None)
  Receive Date: 20120606
  Receipt Date: 20120530
  Transmission Date: 20120825
  Serious: Yes (Other)
  Sender: FDA-Public Use
  Company Number: JP-JNJFOC-20120312319

PATIENT
  Age: 76 Year
  Sex: Female

DRUGS (55)
  1. TRAMADOL HYDROCHLORIDE AND ACETAMINOPHEN [Suspect]
     Dosage: 1 PER 1 DAY /
     Route: 048
     Dates: start: 20120322, end: 20120322
  2. FAMOTIDINE [Concomitant]
     Dosage: ONCE DAILY
     Route: 048
     Dates: start: 20120306, end: 20120322
  3. VOLTAREN [Concomitant]
     Route: 054
     Dates: start: 20120318
  4. PRIMPERAN TAB [Concomitant]
     Dosage: ONCE DAILY
     Route: 048
     Dates: start: 20120227, end: 20120227
  5. PRIMPERAN TAB [Concomitant]
     Dosage: ONCE DAILY
     Route: 048
     Dates: start: 20120315, end: 20120315
  6. ELCATONIN [Concomitant]
     Route: 030
     Dates: start: 20120302, end: 20120302
  7. ELCATONIN [Concomitant]
     Route: 030
     Dates: start: 20120316, end: 20120316
  8. CONIEL [Concomitant]
     Dosage: ONCE DAILY
     Route: 048
     Dates: start: 20120225, end: 20120322
  9. VITAMIN B12 [Concomitant]
     Dosage: ONCE DAILY
     Route: 048
     Dates: start: 20120323, end: 20120326
  10. VOLTAREN [Concomitant]
     Route: 054
     Dates: start: 20120319
  11. NEXIUM [Concomitant]
     Dosage: ONCE DAILY
     Route: 048
     Dates: start: 20120227, end: 20120305
  12. PRIMPERAN TAB [Concomitant]
     Dosage: ONCE DAILY
     Route: 048
     Dates: start: 20120316, end: 20120321
  13. PRIMPERAN TAB [Concomitant]
     Dosage: ONCE DAILY
     Route: 048
     Dates: start: 20120228, end: 20120305
  14. LECICARBON [Concomitant]
     Indication: LIP DRY
     Route: 054
     Dates: start: 20120317, end: 20120317
  15. TRAMADOL HYDROCHLORIDE AND ACETAMINOPHEN [Suspect]
     Indication: PAIN
     Dosage: 2 DF X 1 PER 1 DAY
     Route: 048
     Dates: start: 20120315, end: 20120315
  16. RINDERON-V [Concomitant]
     Indication: CHEILITIS
     Dosage: ONCE DAILY
     Route: 061
     Dates: start: 20120326
  17. OPALMON [Concomitant]
     Dosage: ONCE DAILY
     Route: 048
     Dates: start: 20120225, end: 20120322
  18. FAMOTIDINE [Concomitant]
     Dosage: ONCE DAILY
     Route: 048
     Dates: start: 20120323, end: 20120326
  19. VITAMIN B12 [Concomitant]
     Dosage: ONCE DAILY
     Route: 048
     Dates: start: 20120225, end: 20120322
  20. LAXOBERON [Concomitant]
     Indication: CONSTIPATION
     Route: 048
     Dates: start: 20120316, end: 20120316
  21. VALSARTAN [Concomitant]
     Indication: HYPERTENSION
     Dosage: ONCE DAILY
     Route: 048
     Dates: start: 20120225, end: 20120326
  22. SELBEX [Concomitant]
     Route: 048
     Dates: start: 20120228, end: 20120318
  23. VOLTAREN [Concomitant]
     Route: 054
     Dates: start: 20120228
  24. SELBEX [Concomitant]
     Dosage: ONCE DAILY
     Route: 048
     Dates: start: 20120227, end: 20120227
  25. LOXONIN [Concomitant]
     Dosage: ONCE DAILY
     Route: 048
     Dates: start: 20120302, end: 20120318
  26. VOLTAREN [Concomitant]
     Route: 054
     Dates: start: 20120319
  27. AN UNKNOWN MEDICATION [Concomitant]
     Route: 058
     Dates: start: 20120308, end: 20120308
  28. FAMOTIDINE [Concomitant]
     Route: 048
     Dates: start: 20120225, end: 20120227
  29. CONIEL [Concomitant]
     Indication: HYPERTENSION
     Dosage: ONCE DAILY
     Route: 048
     Dates: start: 20120323, end: 20120326
  30. ZETIA [Concomitant]
     Dosage: ONCE DAILY
     Route: 048
     Dates: start: 20120225, end: 20120326
  31. DEPAS [Concomitant]
     Dosage: ONCE DAILY
     Route: 048
     Dates: start: 20120225, end: 20120322
  32. ASPIRIN [Concomitant]
     Dosage: ONCE DAILY
     Route: 048
     Dates: start: 20120225, end: 20120322
  33. JUVELA [Concomitant]
     Dosage: ONCE DAILY
     Route: 048
     Dates: start: 20120225, end: 20120322
  34. AN UNKNOWN MEDICATION [Concomitant]
     Dosage: ONCE DAILY
     Route: 048
     Dates: start: 20120322, end: 20120326
  35. ADOFEED [Concomitant]
     Route: 062
     Dates: start: 20120229
  36. AMARYL [Concomitant]
     Dosage: ONCE DAILY
     Route: 048
     Dates: start: 20120323, end: 20120326
  37. ALOSENN [Concomitant]
     Indication: CONSTIPATION
     Dosage: ONCE DAILY
     Route: 048
     Dates: start: 20120225, end: 20120326
  38. SELBEX [Concomitant]
     Dosage: ONCE DAILY
     Route: 048
     Dates: start: 20120228, end: 20120318
  39. VOLTAREN [Concomitant]
     Route: 054
     Dates: start: 20120318
  40. LECICARBON [Concomitant]
     Route: 054
     Dates: start: 20120320, end: 20120320
  41. AN UNKNOWN MEDICATION [Concomitant]
     Route: 058
     Dates: start: 20120322, end: 20120322
  42. AN UNKNOWN MEDICATION [Concomitant]
     Route: 058
     Dates: start: 20120315, end: 20120315
  43. TRAMADOL HYDROCHLORIDE AND ACETAMINOPHEN [Suspect]
     Dosage: 1 PER 1 DAY /
     Route: 048
     Dates: start: 20120316, end: 20120321
  44. CEROCRAL [Concomitant]
     Dosage: ONCE DAILY
     Route: 048
     Dates: start: 20120225, end: 20120322
  45. CLOPIDOGREL BISULFATE [Concomitant]
     Dosage: ONCE DAILY
     Route: 048
     Dates: start: 20120225, end: 20120326
  46. LOXONIN [Concomitant]
     Dosage: ONCE DAILY
     Route: 048
     Dates: start: 20120301, end: 20120301
  47. AMARYL [Concomitant]
     Indication: DIABETES MELLITUS
     Dosage: ONCE DAILY
     Route: 048
     Dates: start: 20120225, end: 20120320
  48. AMARYL [Concomitant]
     Dosage: ONCE DAILY
     Route: 048
     Dates: start: 20120321, end: 20120322
  49. VILDAGLIPTIN [Concomitant]
     Indication: DIABETES MELLITUS
     Dosage: TWICE DAILY
     Route: 048
     Dates: start: 20120225, end: 20120326
  50. OPALMON [Concomitant]
     Dosage: ONCE DAILY
     Route: 048
     Dates: start: 20120323, end: 20120326
  51. SELBEX [Concomitant]
     Route: 048
     Dates: start: 20120319, end: 20120326
  52. SELBEX [Concomitant]
     Dosage: ONCE DAILY
     Route: 048
     Dates: start: 20120227, end: 20120227
  53. DEPAS [Concomitant]
     Dosage: ONCE DAILY
     Route: 048
     Dates: start: 20120323, end: 20120326
  54. MERISLON [Concomitant]
     Dosage: ONCE DAILY
     Route: 048
     Dates: start: 20120225, end: 20120322
  55. ELCATONIN [Concomitant]
     Route: 030
     Dates: start: 20120309, end: 20120309

REACTIONS (2)
  - HALLUCINATION [None]
  - CHEILITIS [None]
